FAERS Safety Report 20997781 (Version 3)
Quarter: 2024Q2

REPORT INFORMATION
  Report Type: Spontaneous
  Country: US (occurrence: US)
  Receive Date: 20220623
  Receipt Date: 20240412
  Transmission Date: 20240716
  Serious: Yes (Other)
  Sender: FDA-Public Use
  Company Number: US-JNJFOC-20220634115

PATIENT
  Age: 72 Year
  Sex: Female

DRUGS (39)
  1. ELMIRON [Suspect]
     Active Substance: PENTOSAN POLYSULFATE SODIUM
     Indication: Cystitis interstitial
     Route: 048
     Dates: start: 1998, end: 20130716
  2. ELMIRON [Suspect]
     Active Substance: PENTOSAN POLYSULFATE SODIUM
     Route: 048
     Dates: start: 20130815, end: 20131028
  3. ELMIRON [Suspect]
     Active Substance: PENTOSAN POLYSULFATE SODIUM
     Route: 048
     Dates: start: 20131202, end: 20160929
  4. ELMIRON [Suspect]
     Active Substance: PENTOSAN POLYSULFATE SODIUM
     Route: 048
     Dates: start: 20161125, end: 20170413
  5. ELMIRON [Suspect]
     Active Substance: PENTOSAN POLYSULFATE SODIUM
     Route: 048
     Dates: start: 20170626, end: 20180709
  6. VALACYCLOVIR [Concomitant]
     Active Substance: VALACYCLOVIR HYDROCHLORIDE
     Indication: Herpes virus infection
     Dates: start: 20111011, end: 20140707
  7. VALACYCLOVIR [Concomitant]
     Active Substance: VALACYCLOVIR HYDROCHLORIDE
     Dates: start: 20140909, end: 20190904
  8. VALACYCLOVIR [Concomitant]
     Active Substance: VALACYCLOVIR HYDROCHLORIDE
     Dates: start: 20190923, end: 20200624
  9. VALACYCLOVIR [Concomitant]
     Active Substance: VALACYCLOVIR HYDROCHLORIDE
     Dates: start: 20200727, end: 20210830
  10. OMEPRAZOLE [Concomitant]
     Active Substance: OMEPRAZOLE
     Indication: Dyspepsia
     Dates: start: 20110709, end: 20111001
  11. OMEPRAZOLE [Concomitant]
     Active Substance: OMEPRAZOLE
     Dates: start: 20120220, end: 20140524
  12. OMEPRAZOLE [Concomitant]
     Active Substance: OMEPRAZOLE
     Dates: start: 20140630
  13. OMEPRAZOLE [Concomitant]
     Active Substance: OMEPRAZOLE
     Dates: start: 20140826, end: 20190910
  14. OMEPRAZOLE [Concomitant]
     Active Substance: OMEPRAZOLE
     Dates: start: 20190923, end: 20201110
  15. OMEPRAZOLE [Concomitant]
     Active Substance: OMEPRAZOLE
     Dates: start: 20201206, end: 20211007
  16. ATENOLOL [Concomitant]
     Active Substance: ATENOLOL
     Indication: Hypertension
     Dates: start: 20110709, end: 20111001
  17. ATENOLOL [Concomitant]
     Active Substance: ATENOLOL
     Dates: start: 20111123, end: 20140730
  18. ATENOLOL [Concomitant]
     Active Substance: ATENOLOL
     Dates: start: 20140902, end: 20190808
  19. ATENOLOL [Concomitant]
     Active Substance: ATENOLOL
     Dates: start: 20190923, end: 20191110
  20. ATENOLOL [Concomitant]
     Active Substance: ATENOLOL
     Dates: start: 20200219, end: 20211011
  21. PRAVASTATIN SODIUM [Concomitant]
     Active Substance: PRAVASTATIN SODIUM
     Indication: Blood cholesterol increased
     Dates: start: 20121219, end: 20131104
  22. PRAVASTATIN SODIUM [Concomitant]
     Active Substance: PRAVASTATIN SODIUM
     Dates: start: 20131202, end: 20140618
  23. PRAVASTATIN SODIUM [Concomitant]
     Active Substance: PRAVASTATIN SODIUM
     Dates: start: 20140929, end: 20190731
  24. PRAVASTATIN SODIUM [Concomitant]
     Active Substance: PRAVASTATIN SODIUM
     Dates: start: 20191023, end: 20211030
  25. MESALAMINE [Concomitant]
     Active Substance: MESALAMINE
     Indication: Colitis ulcerative
     Dates: start: 20160829, end: 20190914
  26. MESALAMINE [Concomitant]
     Active Substance: MESALAMINE
     Dates: start: 20190620
  27. MESALAMINE [Concomitant]
     Active Substance: MESALAMINE
     Dates: start: 20191020, end: 20211110
  28. GABAPENTIN [Concomitant]
     Active Substance: GABAPENTIN
     Indication: Neuralgia
     Dates: start: 20181127
  29. GABAPENTIN [Concomitant]
     Active Substance: GABAPENTIN
     Dates: start: 20190124, end: 20190718
  30. GABAPENTIN [Concomitant]
     Active Substance: GABAPENTIN
     Dates: start: 20191123, end: 20200912
  31. GABAPENTIN [Concomitant]
     Active Substance: GABAPENTIN
     Dates: start: 20201221, end: 20210824
  32. RISEDRONATE SODIUM [Concomitant]
     Active Substance: RISEDRONATE SODIUM
     Indication: Osteoporosis
     Dates: start: 20170821, end: 20190903
  33. RISEDRONATE SODIUM [Concomitant]
     Active Substance: RISEDRONATE SODIUM
     Dates: start: 20190926, end: 20200428
  34. RISEDRONATE SODIUM [Concomitant]
     Active Substance: RISEDRONATE SODIUM
     Dates: start: 20201007, end: 20210926
  35. AMOXICILLIN [Concomitant]
     Active Substance: AMOXICILLIN
     Indication: Infection
     Dates: start: 20110731
  36. AMOXICILLIN [Concomitant]
     Active Substance: AMOXICILLIN
     Dates: start: 20151103
  37. AMOXICILLIN [Concomitant]
     Active Substance: AMOXICILLIN
     Dates: start: 20171119, end: 20180413
  38. AMOXICILLIN [Concomitant]
     Active Substance: AMOXICILLIN
     Dates: start: 20190804
  39. AMOXICILLIN [Concomitant]
     Active Substance: AMOXICILLIN
     Dates: start: 20191023, end: 20211024

REACTIONS (4)
  - Dry age-related macular degeneration [Not Recovered/Not Resolved]
  - Vitreous detachment [Not Recovered/Not Resolved]
  - Retinal pigmentation [Not Recovered/Not Resolved]
  - Toxicity to various agents [Not Recovered/Not Resolved]

NARRATIVE: CASE EVENT DATE: 20200121
